FAERS Safety Report 12889403 (Version 1)
Quarter: 2016Q4

REPORT INFORMATION
  Report Type: Spontaneous
  Country: CY (occurrence: CY)
  Receive Date: 20161027
  Receipt Date: 20161027
  Transmission Date: 20170207
  Serious: Yes (Other)
  Sender: FDA-Public Use
  Company Number: CY-BAYER-2016-203623

PATIENT
  Age: 50 Year
  Sex: Female

DRUGS (1)
  1. MIRENA [Suspect]
     Active Substance: LEVONORGESTREL
     Indication: CONTRACEPTION
     Dosage: 20 MCG/24HR, CONT
     Route: 015
     Dates: start: 2015, end: 201610

REACTIONS (4)
  - Uterine polyp [Recovered/Resolved]
  - Genital haemorrhage [None]
  - Device defective [None]
  - Menorrhagia [None]

NARRATIVE: CASE EVENT DATE: 2015
